FAERS Safety Report 9126595 (Version 1)
Quarter: 2013Q1

REPORT INFORMATION
  Report Type: Spontaneous
  Country: US (occurrence: US)
  Receive Date: 20130228
  Receipt Date: 20130228
  Transmission Date: 20140127
  Serious: Yes (Other)
  Sender: FDA-Public Use
  Company Number: US-JNJFOC-20090900047

PATIENT
  Age: 59 Year
  Sex: Male

DRUGS (3)
  1. LEVAQUIN [Suspect]
     Indication: URINARY TRACT INFECTION
     Route: 048
     Dates: start: 200609
  2. LEVAQUIN [Suspect]
     Indication: CYSTITIS
     Route: 048
     Dates: start: 200609
  3. LEVAQUIN [Suspect]
     Indication: CYSTITIS
     Route: 042

REACTIONS (6)
  - Tendon rupture [Unknown]
  - Tenosynovitis [Unknown]
  - Tendonitis [Unknown]
  - Plantar fasciitis [Unknown]
  - Tenosynovitis [Unknown]
  - Pain [Unknown]
